FAERS Safety Report 17883453 (Version 11)
Quarter: 2022Q4

REPORT INFORMATION
  Report Type: Report from Study
  Country: US (occurrence: US)
  Receive Date: 20200611
  Receipt Date: 20221229
  Transmission Date: 20230113
  Serious: Yes (Other)
  Sender: FDA-Public Use
  Company Number: US-SHIRE-US202019217

PATIENT
  Sex: Female
  Weight: 83 kg

DRUGS (35)
  1. HUMAN IMMUNOGLOBULIN G [Suspect]
     Active Substance: HUMAN IMMUNOGLOBULIN G
     Indication: Primary immunodeficiency syndrome
     Dosage: 40 GRAM, Q4WEEKS
     Route: 058
     Dates: start: 20170613
  2. HUMAN IMMUNOGLOBULIN G [Suspect]
     Active Substance: HUMAN IMMUNOGLOBULIN G
     Indication: Selective IgM immunodeficiency
  3. HUMAN IMMUNOGLOBULIN G [Suspect]
     Active Substance: HUMAN IMMUNOGLOBULIN G
     Indication: Immunodeficiency common variable
  4. ACETAMINOPHEN [Concomitant]
     Active Substance: ACETAMINOPHEN
  5. DIPHENHYDRAMINE [Concomitant]
     Active Substance: DIPHENHYDRAMINE
  6. LIDOCAINE [Concomitant]
     Active Substance: LIDOCAINE
     Route: 065
  7. EPINEPHRINE [Concomitant]
     Active Substance: EPINEPHRINE
  8. MELOXICAM [Concomitant]
     Active Substance: MELOXICAM
  9. LYRICA [Concomitant]
     Active Substance: PREGABALIN
  10. SYNTHROID [Concomitant]
     Active Substance: LEVOTHYROXINE SODIUM
  11. FENOFIBRATE [Concomitant]
     Active Substance: FENOFIBRATE
  12. BUSPIRONE [Concomitant]
     Active Substance: BUSPIRONE HYDROCHLORIDE
  13. AMLODIPINE BESYLATE [Concomitant]
     Active Substance: AMLODIPINE BESYLATE
  14. DULOXETINE HYDROCHLORIDE [Concomitant]
     Active Substance: DULOXETINE HYDROCHLORIDE
  15. MORPHINE SULFATE [Concomitant]
     Active Substance: MORPHINE SULFATE
  16. TIZANIDINE HYDROCHLORIDE [Concomitant]
     Active Substance: TIZANIDINE HYDROCHLORIDE
  17. METOPROLOL TARTRATE [Concomitant]
     Active Substance: METOPROLOL TARTRATE
  18. IRON [Concomitant]
     Active Substance: IRON
  19. VITAMIN B12 [Concomitant]
     Active Substance: CYANOCOBALAMIN
  20. ACETAMINOPHEN\HYDROCODONE [Concomitant]
     Active Substance: ACETAMINOPHEN\HYDROCODONE
  21. ASPIRIN [Concomitant]
     Active Substance: ASPIRIN
  22. LEFLUNOMIDE [Concomitant]
     Active Substance: LEFLUNOMIDE
  23. OMEPRAZOLE [Concomitant]
     Active Substance: OMEPRAZOLE
  24. CLONAZEPAM [Concomitant]
     Active Substance: CLONAZEPAM
  25. VITAMIN D3 [Concomitant]
     Active Substance: CHOLECALCIFEROL
  26. VITAMIN C [Concomitant]
     Active Substance: ASCORBIC ACID
  27. LIDOCAINE [Concomitant]
     Active Substance: LIDOCAINE
  28. PREBIOTICS NOS;PROBIOTICS NOS [Concomitant]
  29. NORCO [Concomitant]
     Active Substance: ACETAMINOPHEN\HYDROCODONE BITARTRATE
  30. HYDROCODONE [Concomitant]
     Active Substance: HYDROCODONE
  31. VITAMIN B [Concomitant]
     Active Substance: VITAMIN B
  32. AMLODIPINE BESYLATE [Concomitant]
     Active Substance: AMLODIPINE BESYLATE
  33. DULOXETINE [Concomitant]
     Active Substance: DULOXETINE
  34. TIZANIDINE [Concomitant]
     Active Substance: TIZANIDINE
  35. METOPROLOL [Concomitant]
     Active Substance: METOPROLOL

REACTIONS (11)
  - Neoplasm malignant [Recovered/Resolved]
  - Memory impairment [Unknown]
  - Gastrointestinal disorder [Unknown]
  - Intestinal mass [Unknown]
  - Infusion site extravasation [Unknown]
  - Asthenia [Unknown]
  - Condition aggravated [Unknown]
  - Insurance issue [Unknown]
  - Decreased immune responsiveness [Unknown]
  - Product dose omission issue [Unknown]
  - Inappropriate schedule of product administration [Unknown]
